FAERS Safety Report 11239549 (Version 1)
Quarter: 2015Q3

REPORT INFORMATION
  Report Type: Spontaneous
  Country: US (occurrence: None)
  Receive Date: 20150701
  Receipt Date: 20150701
  Transmission Date: 20151125
  Serious: Yes (Hospitalization, Disabling)
  Sender: FDA-Public Use
  Company Number: None

PATIENT
  Age: 56 Year
  Sex: Male
  Weight: 83.92 kg

DRUGS (5)
  1. ANDROGEL [Suspect]
     Active Substance: TESTOSTERONE
     Dosage: TWO PUMPS/20.25MG ONCE DAILY ?APPLIED TO A SURFACE, USUALLY THE SKIN
  2. MORPHINE SULPHATE [Concomitant]
     Active Substance: MORPHINE SULFATE
  3. FELODIPINE. [Concomitant]
     Active Substance: FELODIPINE
  4. ASPIRIN. [Concomitant]
     Active Substance: ASPIRIN
  5. DIAZEPAM. [Concomitant]
     Active Substance: DIAZEPAM

REACTIONS (3)
  - Heart rate decreased [None]
  - Syncope [None]
  - Presyncope [None]
